FAERS Safety Report 11059867 (Version 1)
Quarter: 2015Q2

REPORT INFORMATION
  Report Type: Spontaneous
  Country: SE (occurrence: SE)
  Receive Date: 20150423
  Receipt Date: 20150423
  Transmission Date: 20150821
  Serious: Yes (Other)
  Sender: FDA-Public Use
  Company Number: SE-TEVA-556953ISR

PATIENT
  Age: 74 Year
  Sex: Female

DRUGS (1)
  1. LOSARTAN [Suspect]
     Active Substance: LOSARTAN
     Route: 065

REACTIONS (3)
  - Sleep disorder [Unknown]
  - Rhinorrhoea [Unknown]
  - Fatigue [Unknown]
